FAERS Safety Report 13125877 (Version 1)
Quarter: 2017Q1

REPORT INFORMATION
  Report Type: Spontaneous
  Country: US (occurrence: US)
  Receive Date: 20170118
  Receipt Date: 20170118
  Transmission Date: 20170428
  Serious: No
  Sender: FDA-Public Use
  Company Number: US-DEPOMED, INC.-US-2016DEP011388

PATIENT

DRUGS (6)
  1. NUCYNTA [Suspect]
     Active Substance: TAPENTADOL HYDROCHLORIDE
     Indication: PAIN
     Dosage: UNK, ONCE
  2. XYREM [Concomitant]
     Active Substance: SODIUM OXYBATE
     Dosage: 6.5 GRAMS FOR FIRST DOSE, 4.5 GRAMS FOR SECOND NIGHTLY DOSE
     Route: 048
  3. XYREM [Concomitant]
     Active Substance: SODIUM OXYBATE
     Dosage: 6 GRAMS AT FIRST DOSE, 4.5 GRAMS FOR SECOND NIGHTLY DOSE
     Route: 048
  4. XYREM [Concomitant]
     Active Substance: SODIUM OXYBATE
     Dosage: 7 GRAMS FOR FIRST DOSE; 5 GRAMS FOR SECOND NIGHTLY DOSE
     Route: 048
  5. XYREM [Concomitant]
     Active Substance: SODIUM OXYBATE
     Dosage: 7 GRAMS FOR FIRST DOSE, 5 GRAMS FOR SECOND NIGHTLY DOSE
     Route: 048
  6. XYREM [Concomitant]
     Active Substance: SODIUM OXYBATE
     Indication: NARCOLEPSY
     Dosage: 2.25 G, TWICE NIGHTLY
     Route: 048
     Dates: start: 201212

REACTIONS (1)
  - Drug ineffective [Unknown]
